FAERS Safety Report 11516038 (Version 1)
Quarter: 2015Q3

REPORT INFORMATION
  Report Type: Spontaneous
  Country: US (occurrence: US)
  Receive Date: 20150917
  Receipt Date: 20150917
  Transmission Date: 20151125
  Serious: No
  Sender: FDA-Public Use
  Company Number: US-ASTRAZENECA-2015SE86671

PATIENT
  Sex: Female

DRUGS (2)
  1. BYETTA [Suspect]
     Active Substance: EXENATIDE
     Route: 065
  2. INSULIN [Concomitant]
     Active Substance: INSULIN NOS
     Route: 065

REACTIONS (2)
  - Dehydration [Unknown]
  - Product quality issue [Unknown]
